FAERS Safety Report 4889262-4 (Version None)
Quarter: 2006Q1

REPORT INFORMATION
  Report Type: 
  Country: None (occurrence: None)
  Receive Date: 20060124
  Receipt Date: 20060118
  Transmission Date: 20060701
  Serious: Yes (Death, Hospitalization, Disabling, Other)
  Sender: FDA-Public Use
  Company Number: 2006UW00753

PATIENT
  Age: 69 Year
  Sex: Male
  Weight: 69.5 kg

DRUGS (23)
  1. LISINOPRIL [Suspect]
     Route: 048
     Dates: end: 20050216
  2. SODIUM NITROPRUSSIDE [Suspect]
     Dosage: 5.0 ML PER HR TO 30.0 ML/HR
     Route: 042
     Dates: start: 20050216, end: 20050216
  3. LOPRESSOR [Concomitant]
  4. LIPITOR [Concomitant]
  5. ECOTRIN [Concomitant]
  6. PEPCID [Concomitant]
  7. PLAVIX [Concomitant]
  8. NORVASC [Concomitant]
  9. NITRO-DUR [Concomitant]
  10. ADVAIR DISKUS 100/50 [Concomitant]
  11. SOLU-MEDROL [Concomitant]
  12. INSULIN [Concomitant]
  13. TYLENOL (CAPLET) [Concomitant]
  14. PROTONIX [Concomitant]
  15. LASIX [Concomitant]
  16. CALCIUM CHLORIDE [Concomitant]
  17. SODIUM BICARBONATE [Concomitant]
  18. POTASSIUM [Concomitant]
  19. NITROGLYCERIN [Concomitant]
  20. ALBUMIN (HUMAN) [Concomitant]
  21. ATIVAN [Concomitant]
  22. VASOPRESSIN [Concomitant]
  23. PRIMACOR [Concomitant]

REACTIONS (8)
  - AORTIC RUPTURE [None]
  - HAEMORRHAGE [None]
  - HYPOTENSION [None]
  - POST PROCEDURAL COMPLICATION [None]
  - PYREXIA [None]
  - RENAL FAILURE ACUTE [None]
  - RENAL TUBULAR NECROSIS [None]
  - WOUND INFECTION [None]
